FAERS Safety Report 8457681-5 (Version None)
Quarter: 2012Q2

REPORT INFORMATION
  Report Type: 
  Country: None (occurrence: None)
  Receive Date: 20120618
  Receipt Date: 20120618
  Transmission Date: 20120825
  Serious: Yes (Disabling)
  Sender: FDA-Public Use
  Company Number: None

PATIENT

DRUGS (1)
  1. PROPECIA [Suspect]
     Indication: ALOPECIA
     Dosage: 1MG ONCE PER DAY PO
     Route: 048
     Dates: start: 19980107, end: 20111104

REACTIONS (10)
  - PEYRONIE'S DISEASE [None]
  - MEMORY IMPAIRMENT [None]
  - SKIN DISORDER [None]
  - TESTICULAR DISORDER [None]
  - ERECTILE DYSFUNCTION [None]
  - DISTURBANCE IN ATTENTION [None]
  - DRY EYE [None]
  - TESTICULAR PAIN [None]
  - DRY SKIN [None]
  - PENIS DISORDER [None]
